FAERS Safety Report 4976018-7 (Version None)
Quarter: 2006Q2

REPORT INFORMATION
  Report Type: 
  Country: None (occurrence: None)
  Receive Date: 20060411
  Receipt Date: 20060329
  Transmission Date: 20061013
  Serious: Yes (Death, Other)
  Sender: FDA-Public Use
  Company Number: 2005129227

PATIENT
  Sex: Male

DRUGS (6)
  1. NEURONTIN [Suspect]
     Indication: ATTENTION DEFICIT/HYPERACTIVITY DISORDER
     Dates: start: 20020730, end: 20030101
  2. NEURONTIN [Suspect]
     Indication: BIPOLAR DISORDER
     Dates: start: 20020730, end: 20030101
  3. NEURONTIN [Suspect]
     Indication: MIGRAINE
     Dates: start: 20020730, end: 20030101
  4. LAMICTAL [Concomitant]
  5. TRILEPTAL [Concomitant]
  6. LEXAPRO [Concomitant]

REACTIONS (5)
  - ALCOHOL POISONING [None]
  - COMPLETED SUICIDE [None]
  - DRUG INEFFECTIVE [None]
  - INJURY ASPHYXIATION [None]
  - RESPIRATORY ARREST [None]
